FAERS Safety Report 5115345-X (Version None)
Quarter: 2006Q3

REPORT INFORMATION
  Report Type: 
  Country: None (occurrence: None)
  Receive Date: 20060922
  Receipt Date: 20060911
  Transmission Date: 20061208
  Serious: Yes (Death)
  Sender: FDA-Public Use
  Company Number: 2006BH013346

PATIENT
  Age: 70 Year
  Sex: Male
  Weight: 77 kg

DRUGS (13)
  1. EXTRANEAL [Suspect]
     Indication: RENAL FAILURE CHRONIC
     Dosage: 1300 ML; EVERY DAY; IP
     Route: 033
     Dates: start: 20040422
  2. DIANEAL [Concomitant]
  3. BLOPRESS [Concomitant]
  4. CARDENALIN [Concomitant]
  5. DAI-KENCHU-TO [Concomitant]
  6. GANATON [Concomitant]
  7. ASPIRIN [Concomitant]
  8. PURSENNID [Concomitant]
  9. ESPO [Concomitant]
  10. CALCIUM CARBONATE [Concomitant]
  11. FAMOTIDINE [Concomitant]
  12. SEVELAMER HYDROCHLORIDE [Concomitant]
  13. ARTIST [Concomitant]

REACTIONS (1)
  - CEREBRAL HAEMORRHAGE [None]
